FAERS Safety Report 8900665 (Version 1)
Quarter: 2012Q4

REPORT INFORMATION
  Report Type: 
  Country: CA (occurrence: CA)
  Receive Date: 20121109
  Receipt Date: 20121109
  Transmission Date: 20130627
  Serious: Yes (Hospitalization, Other)
  Sender: FDA-Public Use
  Company Number: PHMT2007CA01420

PATIENT
  Sex: Female

DRUGS (5)
  1. SANDOSTATIN LAR [Suspect]
     Indication: ACROMEGALY
     Dosage: 20 mg,every 4 weeks
     Dates: start: 20050524
  2. AMIODARONE [Concomitant]
  3. FLUVACCIN [Concomitant]
  4. FOSAMAX [Concomitant]
  5. PREDNISONE [Concomitant]

REACTIONS (12)
  - Hypotension [Recovering/Resolving]
  - Blood pressure fluctuation [Recovering/Resolving]
  - Loss of consciousness [Unknown]
  - Hypertension [Unknown]
  - Dehydration [Recovered/Resolved]
  - Arrhythmia [Recovering/Resolving]
  - Face oedema [Unknown]
  - Contusion [Unknown]
  - Arthropathy [Unknown]
  - Dental discomfort [Unknown]
  - Bone disorder [Unknown]
  - Asthenia [Unknown]
